FAERS Safety Report 8421527-1 (Version None)
Quarter: 2012Q2

REPORT INFORMATION
  Report Type: 
  Country: None (occurrence: None)
  Receive Date: 20120323
  Receipt Date: 20111220
  Transmission Date: 20120825
  Serious: Yes (Other)
  Sender: FDA-Public Use
  Company Number: 163-21880-11122516

PATIENT
  Age: 90 Year
  Sex: Female

DRUGS (9)
  1. ONANSETRON HCL (ONDANSETRON HYDROCHLORIDE) [Concomitant]
  2. OMEPRAZOLE [Concomitant]
  3. ROLAIDS [Concomitant]
  4. DEXAMETHASONE [Concomitant]
  5. TRAMADOL HCL [Concomitant]
  6. OXYCODONE HCL [Concomitant]
  7. LISINOPRIL [Concomitant]
  8. DETROL LA [Concomitant]
  9. REVLIMID [Suspect]
     Indication: MULTIPLE MYELOMA
     Dosage: 25 MG, 1 IN 1 D, PO
     Route: 048
     Dates: start: 20111118

REACTIONS (1)
  - HALLUCINATION [None]
